FAERS Safety Report 20732122 (Version 1)
Quarter: 2022Q2

REPORT INFORMATION
  Report Type: Report from Study
  Country: US (occurrence: US)
  Receive Date: 20220420
  Receipt Date: 20220420
  Transmission Date: 20220721
  Serious: Yes (Other)
  Sender: FDA-Public Use
  Company Number: US-BAYER-2021A275208

PATIENT
  Age: 50 Year
  Sex: Female

DRUGS (5)
  1. STIVARGA [Suspect]
     Active Substance: REGORAFENIB
     Indication: Colorectal cancer
     Dosage: 40 MG, QD (FOR 21 DAYS AND OFF 7 DAYS)
     Dates: start: 20211222
  2. STIVARGA [Suspect]
     Active Substance: REGORAFENIB
     Indication: Colorectal cancer
     Dosage: 40 MG, BID FOR 21 DAYS AND 7 DAYS OFF
     Route: 048
     Dates: start: 20220119
  3. UREA [Concomitant]
     Active Substance: UREA
  4. LAC-HYDRIN [Concomitant]
     Active Substance: AMMONIUM LACTATE
  5. EPSOM SALT [Concomitant]
     Active Substance: MAGNESIUM SULFATE
     Dosage: UNK

REACTIONS (20)
  - Dehydration [Not Recovered/Not Resolved]
  - Decreased appetite [Not Recovered/Not Resolved]
  - Back pain [Not Recovered/Not Resolved]
  - Pain in extremity [Not Recovered/Not Resolved]
  - Limb discomfort [Recovering/Resolving]
  - Malaise [Not Recovered/Not Resolved]
  - Hyperphagia [Not Recovered/Not Resolved]
  - Alopecia [Not Recovered/Not Resolved]
  - Fatigue [Not Recovered/Not Resolved]
  - Asthenia [Not Recovered/Not Resolved]
  - Diarrhoea [Not Recovered/Not Resolved]
  - Palmar-plantar erythrodysaesthesia syndrome [Recovered/Resolved]
  - Off label use [None]
  - Blood sodium decreased [Not Recovered/Not Resolved]
  - Palmar-plantar erythrodysaesthesia syndrome [Recovering/Resolving]
  - Skin exfoliation [Recovering/Resolving]
  - Dry skin [None]
  - Sensitive skin [None]
  - Gait disturbance [Recovering/Resolving]
  - Pain in extremity [Recovering/Resolving]
